FAERS Safety Report 11443587 (Version 5)
Quarter: 2015Q3

REPORT INFORMATION
  Report Type: Spontaneous
  Country: AT (occurrence: AT)
  Receive Date: 20150901
  Receipt Date: 20150916
  Transmission Date: 20151125
  Serious: Yes (Life-Threatening, Hospitalization)
  Sender: FDA-Public Use
  Company Number: AT-ABBVIE-15P-009-1451849-00

PATIENT
  Age: 60 Year
  Sex: Female

DRUGS (3)
  1. DUODOPA [Suspect]
     Active Substance: CARBIDOPA\LEVODOPA
     Dosage: MD. 7 ML, CR: 1.8 ML/H, ED: 1 ML; 16 H OF THERAPY
     Route: 050
  2. DUODOPA [Suspect]
     Active Substance: CARBIDOPA\LEVODOPA
     Dosage: MD: 6.5 ML; KR: 1.4 ML/H; ED: 0.7 ML. 16 H OF THERAPY
     Route: 050
     Dates: start: 20150902
  3. DUODOPA [Suspect]
     Active Substance: CARBIDOPA\LEVODOPA
     Indication: PARKINSON^S DISEASE
     Dosage: MD: 6.5 ML; KR: 1.4 ML/H; ED: 0.7 ML. 16 H OF THERAPY
     Route: 050
     Dates: start: 20150820, end: 20150822

REACTIONS (6)
  - Abdominal pain [Recovering/Resolving]
  - Complication of device insertion [Unknown]
  - Peritonitis [Unknown]
  - Inflammatory marker increased [Unknown]
  - On and off phenomenon [Unknown]
  - Perihepatic abscess [Unknown]

NARRATIVE: CASE EVENT DATE: 20150821
